FAERS Safety Report 23338777 (Version 1)
Quarter: 2023Q4

REPORT INFORMATION
  Report Type: Spontaneous
  Country: CN (occurrence: None)
  Receive Date: 20231226
  Receipt Date: 20231226
  Transmission Date: 20240110
  Serious: Yes (Other)
  Sender: FDA-Public Use
  Company Number: 2023A290276

PATIENT
  Age: 21483 Day
  Sex: Female
  Weight: 51 kg

DRUGS (4)
  1. OSIMERTINIB MESYLATE [Suspect]
     Active Substance: OSIMERTINIB MESYLATE
     Indication: Lung neoplasm malignant
     Route: 048
     Dates: start: 20231205, end: 20231207
  2. EPIRUBICIN HYDROCHLORIDE [Suspect]
     Active Substance: EPIRUBICIN HYDROCHLORIDE
     Indication: Lung neoplasm malignant
     Route: 042
     Dates: start: 20231205, end: 20231206
  3. CYCLOPHOSPHAMIDE [Suspect]
     Active Substance: CYCLOPHOSPHAMIDE
     Indication: Lung neoplasm malignant
     Dosage: APPROVAL NUMBER: NATIONAL MEDICINE PERMISSION NUMBER HJ20160467
     Route: 042
     Dates: start: 20231205, end: 20231205
  4. BEVACIZUMAB [Concomitant]
     Active Substance: BEVACIZUMAB
     Indication: Lung neoplasm malignant
     Dates: start: 20231205, end: 20231205

REACTIONS (4)
  - Myelosuppression [Unknown]
  - Nausea [Unknown]
  - Vomiting [Recovering/Resolving]
  - Decreased appetite [Recovering/Resolving]

NARRATIVE: CASE EVENT DATE: 20231206
